FAERS Safety Report 9019990 (Version 1)
Quarter: 2013Q1

REPORT INFORMATION
  Report Type: Spontaneous
  Country: US (occurrence: US)
  Receive Date: 20130119
  Receipt Date: 20130119
  Transmission Date: 20140127
  Serious: No
  Sender: FDA-Public Use
  Company Number: US-ALLERGAN-1211696US

PATIENT
  Age: 73 Year
  Sex: Female

DRUGS (2)
  1. BOTOX? [Suspect]
     Indication: BLEPHAROSPASM
     Dosage: 70 UNITS, SINGLE
     Route: 030
     Dates: start: 20120815, end: 20120815
  2. REFRESH P.M. [Suspect]
     Indication: DRY EYE
     Dosage: UNK UNK, PRN
     Route: 047

REACTIONS (4)
  - Dark circles under eyes [Unknown]
  - Vision blurred [Not Recovered/Not Resolved]
  - Eye pain [Not Recovered/Not Resolved]
  - Influenza like illness [Unknown]
